FAERS Safety Report 4551896-4 (Version None)
Quarter: 2004Q4

REPORT INFORMATION
  Report Type: 
  Country: None (occurrence: None)
  Receive Date: 20041217
  Receipt Date: 20040812
  Transmission Date: 20050328
  Serious: No
  Sender: FDA-Public Use
  Company Number: 2004-BP-06841BP(0)

PATIENT
  Sex: Male

DRUGS (9)
  1. SPIRIVA [Suspect]
     Indication: CHRONIC OBSTRUCTIVE AIRWAYS DISEASE
     Dosage: 18 MCG (18 MCG), IH
     Route: 055
  2. ADVAIR (SERETIDE MITE) [Concomitant]
  3. AMBIEN [Concomitant]
  4. PLAVIX [Concomitant]
  5. DILTIAZEM [Concomitant]
  6. ANDROGEL (TESTSTERONE) [Concomitant]
  7. ACETYLSALICYLIC ACID SRT [Concomitant]
  8. XANAX [Concomitant]
  9. PRILOSEC [Concomitant]

REACTIONS (5)
  - BONE PAIN [None]
  - COUGH [None]
  - DYSPNOEA EXACERBATED [None]
  - FATIGUE [None]
  - MYALGIA [None]
